FAERS Safety Report 9602803 (Version 2)
Quarter: 2013Q4

REPORT INFORMATION
  Report Type: Spontaneous
  Country: KR (occurrence: KR)
  Receive Date: 20131007
  Receipt Date: 20131007
  Transmission Date: 20140711
  Serious: Yes (Other)
  Sender: FDA-Public Use
  Company Number: KR-LUNDBECK-DKLU1088684

PATIENT
  Age: 66 Year
  Sex: Female

DRUGS (4)
  1. SABRIL (TABLET) [Suspect]
     Indication: EPILEPSY
  2. CARBAMAZEPINE [Suspect]
     Indication: EPILEPSY
  3. TOPIRAMATE [Suspect]
     Indication: EPILEPSY
  4. VALPROIC ACID [Suspect]
     Indication: EPILEPSY

REACTIONS (1)
  - Toxic encephalopathy [Recovered/Resolved]
